FAERS Safety Report 6900202-6 (Version None)
Quarter: 2010Q3

REPORT INFORMATION
  Report Type: 
  Country: None (occurrence: None)
  Receive Date: 20100803
  Receipt Date: 20100729
  Transmission Date: 20110219
  Serious: Yes (Death, Disabling)
  Sender: FDA-Public Use
  Company Number: DE-MPIJNJ-2010-03213

PATIENT

DRUGS (8)
  1. VELCADE [Suspect]
     Indication: MULTIPLE MYELOMA
     Dosage: 1.3 MG/M2, UNK
     Dates: start: 20071031, end: 20080121
  2. VELCADE [Suspect]
     Dosage: 2.3 MG, UNK
     Route: 042
     Dates: start: 20081017, end: 20081218
  3. ADRIAMYCIN PFS [Suspect]
     Indication: MULTIPLE MYELOMA
     Dosage: 9 MG/M2, UNK
     Dates: start: 20071031, end: 20080105
  4. ADRIAMYCIN PFS [Suspect]
     Dosage: 15 MG/M2, UNK
     Dates: start: 20080214, end: 20080217
  5. DEXAMETHASONE [Suspect]
     Indication: MULTIPLE MYELOMA
     Dosage: 40 MG, UNK
     Dates: start: 20071031, end: 20080121
  6. DEXAMETHASONE [Suspect]
     Dosage: 40 MG, UNK
     Dates: start: 20080214, end: 20080217
  7. CYCLOPHOSPHAMIDE [Suspect]
     Indication: MULTIPLE MYELOMA
     Dosage: 1940 MG, UNK
     Dates: start: 20080814, end: 20080214
  8. MELPHALAN [Suspect]
     Indication: MULTIPLE MYELOMA
     Dosage: 200 MG/M2, UNK
     Dates: start: 20080402, end: 20080715

REACTIONS (2)
  - DISEASE PROGRESSION [None]
  - NEUROPATHY PERIPHERAL [None]
